FAERS Safety Report 25714053 (Version 1)
Quarter: 2025Q3

REPORT INFORMATION
  Report Type: Spontaneous
  Country: EU (occurrence: EU)
  Receive Date: 20250822
  Receipt Date: 20250822
  Transmission Date: 20251020
  Serious: Yes (Hospitalization, Other)
  Sender: AUROBINDO
  Company Number: EU-AFSSAPS-BS2025000619

PATIENT
  Age: 63 Year
  Sex: Female
  Weight: 80.4 kg

DRUGS (7)
  1. METHOTREXATE [Suspect]
     Active Substance: METHOTREXATE
     Indication: Chronic lymphocytic leukaemia
     Route: 042
     Dates: start: 20250715, end: 20250715
  2. METHOTREXATE [Suspect]
     Active Substance: METHOTREXATE
     Dates: start: 20250718, end: 20250718
  3. CYTARABINE [Suspect]
     Active Substance: CYTARABINE
     Indication: Chronic lymphocytic leukaemia
     Route: 042
     Dates: start: 20250716, end: 20250717
  4. CYTARABINE [Suspect]
     Active Substance: CYTARABINE
     Route: 037
     Dates: start: 20250718, end: 20250718
  5. PREDNISONE [Suspect]
     Active Substance: PREDNISONE
     Indication: Chronic lymphocytic leukaemia
     Dates: start: 20250718, end: 20250718
  6. ONDANSETRON [Suspect]
     Active Substance: ONDANSETRON
     Indication: Product used for unknown indication
     Dosage: 8 MILLIGRAM, TWO TIMES A DAY
     Route: 042
     Dates: start: 20250715, end: 20250721
  7. LEVOLEUCOVORIN CALCIUM [Suspect]
     Active Substance: LEVOLEUCOVORIN CALCIUM
     Indication: Chronic lymphocytic leukaemia
     Dosage: 12.5 MILLIGRAM, FOUR TIMES/DAY
     Route: 042
     Dates: start: 20250716, end: 20250718

REACTIONS (1)
  - Cerebellar syndrome [Recovering/Resolving]

NARRATIVE: CASE EVENT DATE: 20250719
